FAERS Safety Report 4451158-X (Version None)
Quarter: 2004Q3

REPORT INFORMATION
  Report Type: 
  Country: None (occurrence: None)
  Receive Date: 20040916
  Receipt Date: 20040910
  Transmission Date: 20050211
  Serious: Yes (Death, Other)
  Sender: FDA-Public Use
  Company Number: 200412742EU

PATIENT
  Sex: Female

DRUGS (2)
  1. ENOXAPARIN SODIUM [Suspect]
     Indication: ATRIAL FIBRILLATION
     Route: 058
  2. SODIUM HEPARIN [Concomitant]
     Indication: HAEMODIALYSIS

REACTIONS (3)
  - CEREBROVASCULAR ACCIDENT [None]
  - HAEMATOMA [None]
  - HAEMOGLOBIN DECREASED [None]
